FAERS Safety Report 21190143 (Version 1)
Quarter: 2022Q3

REPORT INFORMATION
  Report Type: Spontaneous
  Country: JP (occurrence: JP)
  Receive Date: 20220809
  Receipt Date: 20220809
  Transmission Date: 20221027
  Serious: Yes (Other)
  Sender: FDA-Public Use
  Company Number: JP-MYLANLABS-2022M1083466

PATIENT
  Age: 66 Year
  Sex: Male

DRUGS (13)
  1. TORSEMIDE [Suspect]
     Active Substance: TORSEMIDE
     Indication: Product used for unknown indication
     Dosage: 4 MILLIGRAM, QD
     Route: 048
  2. TENELIGLIPTIN HYDROBROMIDE HYDRATE [Suspect]
     Active Substance: TENELIGLIPTIN HYDROBROMIDE HYDRATE
     Indication: Product used for unknown indication
     Dosage: UNK
     Route: 048
  3. GLIMEPIRIDE [Concomitant]
     Active Substance: GLIMEPIRIDE
     Dosage: UNK
     Route: 065
  4. LANTUS [Concomitant]
     Active Substance: INSULIN GLARGINE
     Dosage: UNK
     Route: 065
  5. RYZODEG 70/30 [Concomitant]
     Active Substance: INSULIN ASPART\INSULIN DEGLUDEC
     Dosage: UNK
     Route: 065
  6. ALOGLIPTIN BENZOATE [Concomitant]
     Active Substance: ALOGLIPTIN BENZOATE
     Dosage: UNK
     Route: 065
  7. ACTOS [Concomitant]
     Active Substance: PIOGLITAZONE HYDROCHLORIDE
     Dosage: UNK
     Route: 065
  8. DOXAZOSIN [Concomitant]
     Active Substance: DOXAZOSIN MESYLATE
     Dosage: UNK
     Route: 065
  9. AZELNIDIPINE [Concomitant]
     Active Substance: AZELNIDIPINE
     Dosage: UNK
     Route: 065
  10. CILNIDIPINE [Concomitant]
     Active Substance: CILNIDIPINE
     Dosage: UNK
     Route: 065
  11. TELMISARTAN [Concomitant]
     Active Substance: TELMISARTAN
     Dosage: UNK
     Route: 065
  12. IRBESARTAN [Concomitant]
     Active Substance: IRBESARTAN
     Indication: Product used for unknown indication
     Dosage: UNK
     Route: 065
  13. NIFEDIPINE [Concomitant]
     Active Substance: NIFEDIPINE
     Dosage: UNK
     Route: 065

REACTIONS (3)
  - Nephropathy [Unknown]
  - Retinopathy proliferative [Unknown]
  - Neurosis [Unknown]
